FAERS Safety Report 10348351 (Version 4)
Quarter: 2014Q3

REPORT INFORMATION
  Report Type: Spontaneous
  Country: JP (occurrence: None)
  Receive Date: 20140725
  Receipt Date: 20140922
  Transmission Date: 20150326
  Serious: Yes (Hospitalization, Other)
  Sender: FDA-Public Use
  Company Number: JP-RRD-14-00088

PATIENT
  Age: 30 Day
  Sex: Female
  Weight: .7 kg

DRUGS (6)
  1. MYELON (SODIUM BICARBONATE) (INJECTION) (SODIUM BICARBONATE) [Concomitant]
  2. KAKODIN (DOPAMINE HYDROCHLORIDE) (INJECTION) (DOPAMINE HYDROCHLORIDE) [Concomitant]
  3. SOLU-CORTEF [Suspect]
     Active Substance: HYDROCORTISONE SODIUM SUCCINATE
     Indication: BLOOD PRESSURE DECREASED
     Dosage: 4.5 MG 2 IN 1 D
     Route: 041
     Dates: start: 20130210, end: 20130210
  4. DOBUTREX [Concomitant]
     Active Substance: DOBUTAMINE HYDROCHLORIDE
  5. INDACIN (INDOMETACIN) (INDOMETACIN) [Suspect]
     Active Substance: INDOMETHACIN
     Indication: PATENT DUCTUS ARTERIOSUS
     Dosage: 0.17 MG, INTRAVENOUS DRIP.
     Route: 041
     Dates: start: 20130209, end: 20130209
  6. LASIX (FUROSEMIDE) (INJECTION) (FUROSEMIDE) [Concomitant]

REACTIONS (17)
  - Liver disorder [None]
  - Aspartate aminotransferase increased [None]
  - Short-bowel syndrome [None]
  - Blood bilirubin increased [None]
  - Sepsis [None]
  - Blood pressure decreased [None]
  - Bilirubin conjugated increased [None]
  - Circulatory collapse [None]
  - Duodenal perforation [None]
  - Gastrointestinal disorder [None]
  - Necrotising colitis [None]
  - Intestinal anastomosis [None]
  - Deafness neurosensory [None]
  - Disseminated intravascular coagulation [None]
  - Disease progression [None]
  - Alanine aminotransferase increased [None]
  - Blood alkaline phosphatase increased [None]

NARRATIVE: CASE EVENT DATE: 20130209
